FAERS Safety Report 4462680-4 (Version None)
Quarter: 2004Q3

REPORT INFORMATION
  Report Type: 
  Country: None (occurrence: None)
  Receive Date: 20040927
  Receipt Date: 20040903
  Transmission Date: 20050211
  Serious: Yes (Other)
  Sender: FDA-Public Use
  Company Number: PHEH2004US09190

PATIENT
  Age: 77 Year
  Sex: Female
  Weight: 58.9676 kg

DRUGS (7)
  1. VISUDYNE [Suspect]
     Indication: MACULAR DEGENERATION
     Dosage: 4.8 ML DAILY IV
     Route: 042
     Dates: start: 20040708, end: 20040708
  2. ZOCOR [Concomitant]
  3. NORVASC [Concomitant]
  4. PREMARIN [Concomitant]
  5. AZMACORT [Concomitant]
  6. DARVON [Concomitant]
  7. HYZAAR [Concomitant]

REACTIONS (5)
  - ASTHENIA [None]
  - CEREBROVASCULAR ACCIDENT [None]
  - PAIN IN EXTREMITY [None]
  - PYREXIA [None]
  - TRANSIENT ISCHAEMIC ATTACK [None]
